FAERS Safety Report 9628324 (Version 1)
Quarter: 2013Q4

REPORT INFORMATION
  Report Type: Spontaneous
  Country: BR (occurrence: BR)
  Receive Date: 20131017
  Receipt Date: 20131017
  Transmission Date: 20140711
  Serious: Yes (Hospitalization, Other)
  Sender: FDA-Public Use
  Company Number: PHHY2013BR114826

PATIENT
  Sex: Female

DRUGS (5)
  1. TRILEPTAL [Suspect]
     Indication: EPILEPSY
     Dosage: UNK UKN, UNK
  2. RIVOTRIL [Suspect]
     Indication: EPILEPSY
     Dosage: 0.25 MG, UNK
  3. RIVOTRIL [Suspect]
     Dosage: 2 MG, UNK
  4. DEPURA [Concomitant]
     Indication: PROPHYLAXIS
     Dosage: 15 DROPS DAILY
  5. SABRIL [Concomitant]
     Indication: EPILEPSY
     Dosage: 1 DF, DAILY

REACTIONS (13)
  - Fall [Unknown]
  - Head injury [Unknown]
  - Haemorrhage [Unknown]
  - Urinary tract infection [Not Recovered/Not Resolved]
  - Dysuria [Not Recovered/Not Resolved]
  - Urine odour abnormal [Not Recovered/Not Resolved]
  - Chromaturia [Not Recovered/Not Resolved]
  - Petit mal epilepsy [Unknown]
  - Learning disorder [Not Recovered/Not Resolved]
  - Memory impairment [Not Recovered/Not Resolved]
  - Muscular weakness [Unknown]
  - Dizziness [Unknown]
  - Hyponatraemia [Unknown]
